FAERS Safety Report 10753346 (Version 1)
Quarter: 2015Q1

REPORT INFORMATION
  Report Type: Spontaneous
  Country: IN (occurrence: None)
  Receive Date: 20150129
  Receipt Date: 20150129
  Transmission Date: 20150721
  Serious: Yes (Hospitalization)
  Sender: FDA-Public Use
  Company Number: IN-ZYDUS-006441

PATIENT
  Age: 7 Year
  Sex: Male

DRUGS (1)
  1. ATOMOXETINE (ATOMOXETINE) [Suspect]
     Active Substance: ATOMOXETINE
     Indication: ATTENTION DEFICIT/HYPERACTIVITY DISORDER
     Dosage: 1.0DAYS

REACTIONS (1)
  - Camptocormia [None]
